FAERS Safety Report 13456647 (Version 4)
Quarter: 2017Q4

REPORT INFORMATION
  Report Type: Spontaneous
  Country: PT (occurrence: PT)
  Receive Date: 20170419
  Receipt Date: 20171206
  Transmission Date: 20180320
  Serious: Yes (Other)
  Sender: FDA-Public Use
  Company Number: PT-JNJFOC-20170415903

PATIENT
  Age: 48 Year
  Sex: Female

DRUGS (5)
  1. PANTOPRAZOLE [Concomitant]
     Active Substance: PANTOPRAZOLE
     Route: 065
  2. SIMPONI [Suspect]
     Active Substance: GOLIMUMAB
     Indication: SPONDYLOARTHROPATHY
     Route: 058
     Dates: start: 20170904
  3. ARCOXIA [Concomitant]
     Active Substance: ETORICOXIB
     Indication: PRODUCT USED FOR UNKNOWN INDICATION
     Route: 065
  4. ARCOXIA [Concomitant]
     Active Substance: ETORICOXIB
     Indication: PRODUCT USED FOR UNKNOWN INDICATION
     Route: 065
  5. SIMPONI [Suspect]
     Active Substance: GOLIMUMAB
     Indication: SPONDYLOARTHROPATHY
     Route: 058
     Dates: start: 201511, end: 201702

REACTIONS (3)
  - Pain [Unknown]
  - Musculoskeletal stiffness [Unknown]
  - Haemorrhagic cyst [Recovered/Resolved]
